FAERS Safety Report 6298149-4 (Version None)
Quarter: 2009Q3

REPORT INFORMATION
  Report Type: 
  Country: None (occurrence: None)
  Receive Date: 20090805
  Receipt Date: 20090723
  Transmission Date: 20100115
  Serious: Yes (Other)
  Sender: FDA-Public Use
  Company Number: US-MERCK-0908USA00298

PATIENT
  Age: 43 Year
  Sex: Female

DRUGS (3)
  1. FOSAMAX [Suspect]
     Indication: OSTEOPOROSIS
     Route: 048
  2. VITAMIN D (UNSPECIFIED) [Concomitant]
     Route: 065
  3. FLUTICASONE [Concomitant]
     Route: 065

REACTIONS (3)
  - FEMUR FRACTURE [None]
  - FOOT FRACTURE [None]
  - RIB FRACTURE [None]
